FAERS Safety Report 6987222-0 (Version None)
Quarter: 2010Q3

REPORT INFORMATION
  Report Type: 
  Country: None (occurrence: None)
  Receive Date: 20100827
  Receipt Date: 20100126
  Transmission Date: 20110219
  Serious: Yes (Other)
  Sender: FDA-Public Use
  Company Number: AMAG201000053

PATIENT
  Age: 71 Year
  Sex: Female
  Weight: 64.4 kg

DRUGS (9)
  1. FERAHEME [Suspect]
     Indication: IRON DEFICIENCY ANAEMIA
     Dosage: 510 MG, SINGLE, INTRAVENOUS
     Route: 042
     Dates: start: 20100126, end: 20100126
  2. GABAPENTIN [Concomitant]
  3. LOPRESSOR [Concomitant]
  4. METHADONE HCL [Concomitant]
  5. NEXIUM [Concomitant]
  6. SUCRALFATE [Concomitant]
  7. TRAZODONE HCL [Concomitant]
  8. ZANTAC [Concomitant]
  9. ZOLOFT [Concomitant]

REACTIONS (2)
  - BACK PAIN [None]
  - HYPERTENSION [None]
